FAERS Safety Report 11616829 (Version 4)
Quarter: 2017Q1

REPORT INFORMATION
  Report Type: Spontaneous
  Country: US (occurrence: US)
  Receive Date: 20151009
  Receipt Date: 20170103
  Transmission Date: 20170428
  Serious: Yes (Other)
  Sender: FDA-Public Use
  Company Number: US-BAYER-2015-434767

PATIENT
  Age: 57 Year
  Sex: Female
  Weight: 59.86 kg

DRUGS (1)
  1. AVELOX [Suspect]
     Active Substance: MOXIFLOXACIN HYDROCHLORIDE
     Indication: INFECTION
     Dosage: 400 MG, UNK
     Route: 048
     Dates: start: 20090901

REACTIONS (24)
  - Paraesthesia [None]
  - Oedema peripheral [None]
  - Neuropathy peripheral [Not Recovered/Not Resolved]
  - Neuropathy peripheral [Not Recovered/Not Resolved]
  - Asthenia [None]
  - Blood pressure increased [None]
  - Sneezing [None]
  - Tendon rupture [None]
  - Myalgia [None]
  - Cellulitis [None]
  - Injury [None]
  - Insomnia [None]
  - Malaise [None]
  - Pain in extremity [None]
  - Pain [None]
  - Muscular weakness [None]
  - Hypoaesthesia [None]
  - Skin ulcer [None]
  - Nasal congestion [None]
  - Arthralgia [None]
  - Dermatitis [None]
  - Emotional distress [None]
  - Rash [None]
  - Blood cholesterol increased [None]

NARRATIVE: CASE EVENT DATE: 200910
